FAERS Safety Report 26209857 (Version 1)
Quarter: 2025Q4

REPORT INFORMATION
  Report Type: Spontaneous
  Country: US (occurrence: US)
  Receive Date: 20251229
  Receipt Date: 20251229
  Transmission Date: 20260117
  Serious: No
  Sender: FRESENIUS KABI
  Company Number: US-FreseniusKabi-FK202517503

PATIENT

DRUGS (1)
  1. HEPARIN SODIUM [Suspect]
     Active Substance: HEPARIN SODIUM
     Indication: Anticoagulant therapy
     Dosage: INJECTION?70-100 UNITS/KG UFH  BUT HAD TO GIVE MUCH MORE TO ACHIEVE RESULT
     Dates: start: 20251217

REACTIONS (1)
  - Therapeutic product effect decreased [Unknown]

NARRATIVE: CASE EVENT DATE: 20251217
